APPROVED DRUG PRODUCT: FENOFIBRATE
Active Ingredient: FENOFIBRATE
Strength: 160MG
Dosage Form/Route: TABLET;ORAL
Application: A076509 | Product #002 | TE Code: AB
Applicant: IMPAX LABORATORIES INC
Approved: Mar 26, 2008 | RLD: No | RS: Yes | Type: RX